FAERS Safety Report 5428119-7 (Version None)
Quarter: 2007Q3

REPORT INFORMATION
  Report Type: 
  Country: None (occurrence: None)
  Receive Date: 20070828
  Receipt Date: 20070828
  Transmission Date: 20080115
  Serious: Yes (Hospitalization, Other)
  Sender: FDA-Public Use
  Company Number: JP-BOEHRINGER INGELHEIM PHARMACEUTICALS, INC.-2007-BP-18832NB

PATIENT
  Sex: Male
  Weight: 38.8 kg

DRUGS (7)
  1. SPIRIVA [Suspect]
     Indication: EMPHYSEMA
     Route: 048
     Dates: start: 20060122
  2. THEO-DUR [Concomitant]
     Indication: EMPHYSEMA
     Route: 048
     Dates: start: 20060120
  3. MUCOSOLVAN [Concomitant]
     Indication: BRONCHITIS CHRONIC
     Route: 048
     Dates: start: 20050120
  4. BISOLVON [Concomitant]
     Indication: BRONCHITIS CHRONIC
     Route: 048
     Dates: start: 20060120
  5. DIGITOXIN TAB [Concomitant]
     Indication: ATRIAL FIBRILLATION
     Route: 048
     Dates: start: 20060120
  6. LASIX [Concomitant]
     Indication: CARDIAC FAILURE CHRONIC
     Route: 048
     Dates: start: 20060119
  7. WARFARIN [Concomitant]
     Indication: ATRIAL FIBRILLATION
     Route: 048
     Dates: start: 20060113

REACTIONS (2)
  - GASTRIC CANCER [None]
  - GASTROINTESTINAL HAEMORRHAGE [None]
